FAERS Safety Report 5139760-3 (Version None)
Quarter: 2006Q4

REPORT INFORMATION
  Report Type: 
  Country: None (occurrence: None)
  Receive Date: 20061023
  Receipt Date: 20061009
  Transmission Date: 20070319
  Serious: Yes (Hospitalization)
  Sender: FDA-Public Use
  Company Number: FR200610001735

PATIENT
  Age: 83 Year
  Sex: Female

DRUGS (2)
  1. FORTEO [Suspect]
     Indication: OSTEOPOROSIS
     Dosage: 20 UG, DAILY (1/D), SUBCUTANEOUS
     Route: 058
     Dates: start: 20060201, end: 20060830
  2. FORTEO [Concomitant]

REACTIONS (3)
  - CARDIAC DISORDER [None]
  - GASTROINTESTINAL CARCINOMA [None]
  - NERVOUS SYSTEM DISORDER [None]
